FAERS Safety Report 25559593 (Version 1)
Quarter: 2025Q3

REPORT INFORMATION
  Report Type: Spontaneous
  Country: US (occurrence: US)
  Receive Date: 20250715
  Receipt Date: 20250715
  Transmission Date: 20251020
  Serious: No
  Sender: NOVO NORDISK
  Company Number: US-NOVOPROD-1398999

PATIENT
  Age: 73 Year
  Sex: Female

DRUGS (3)
  1. OZEMPIC [Suspect]
     Active Substance: SEMAGLUTIDE
     Indication: Type 2 diabetes mellitus
     Route: 058
     Dates: start: 202410, end: 202501
  2. OZEMPIC [Suspect]
     Active Substance: SEMAGLUTIDE
     Dates: start: 20250221
  3. OZEMPIC [Suspect]
     Active Substance: SEMAGLUTIDE
     Dates: end: 202502

REACTIONS (5)
  - Cataract operation [Recovered/Resolved]
  - Cataract operation [Recovered/Resolved]
  - Constipation [Not Recovered/Not Resolved]
  - Wrong technique in product usage process [Not Recovered/Not Resolved]
  - Product communication issue [Not Recovered/Not Resolved]

NARRATIVE: CASE EVENT DATE: 20250131
